FAERS Safety Report 12802197 (Version 1)
Quarter: 2016Q4

REPORT INFORMATION
  Report Type: Spontaneous
  Country: US (occurrence: US)
  Receive Date: 20161003
  Receipt Date: 20161003
  Transmission Date: 20170207
  Serious: No
  Sender: FDA-Public Use
  Company Number: US-JAZZ-2016-US-012350

PATIENT
  Age: 50 Year
  Sex: Male

DRUGS (42)
  1. XYREM [Suspect]
     Active Substance: SODIUM OXYBATE
     Dosage: DOSE ADJUSTMENTS
     Route: 048
     Dates: start: 200710, end: 201603
  2. ACIDOPHILUS XTRA [Concomitant]
  3. IBUPROFEN. [Concomitant]
     Active Substance: IBUPROFEN
  4. PRAZOSIN [Concomitant]
     Active Substance: PRAZOSIN
  5. XYREM [Suspect]
     Active Substance: SODIUM OXYBATE
     Dosage: 3 G, SECOND DOSE
     Route: 048
     Dates: start: 201603
  6. DIAZEPAM. [Concomitant]
     Active Substance: DIAZEPAM
  7. SEROQUEL [Concomitant]
     Active Substance: QUETIAPINE FUMARATE
  8. REMERON [Concomitant]
     Active Substance: MIRTAZAPINE
  9. XYREM [Suspect]
     Active Substance: SODIUM OXYBATE
     Dosage: 5 G, FIRST DOSE
     Route: 048
     Dates: start: 201603
  10. XYREM [Suspect]
     Active Substance: SODIUM OXYBATE
     Dosage: 2 G, THIRD DOSE
     Route: 048
     Dates: start: 201603
  11. CATAPRES [Concomitant]
     Active Substance: CLONIDINE HYDROCHLORIDE
  12. FLEXERIL [Concomitant]
     Active Substance: CYCLOBENZAPRINE HYDROCHLORIDE
  13. NORCO [Concomitant]
     Active Substance: ACETAMINOPHEN\HYDROCODONE BITARTRATE
  14. ASPIRIN. [Concomitant]
     Active Substance: ASPIRIN
  15. PROPRANOLOL [Concomitant]
     Active Substance: PROPRANOLOL\PROPRANOLOL HYDROCHLORIDE
  16. GABITRIL [Concomitant]
     Active Substance: TIAGABINE HYDROCHLORIDE
  17. VICODIN [Concomitant]
     Active Substance: ACETAMINOPHEN\HYDROCODONE BITARTRATE
  18. VYTORIN [Concomitant]
     Active Substance: EZETIMIBE\SIMVASTATIN
  19. BACLOFEN. [Concomitant]
     Active Substance: BACLOFEN
  20. FENOFIBRATE. [Concomitant]
     Active Substance: FENOFIBRATE
  21. PAXIL [Concomitant]
     Active Substance: PAROXETINE HYDROCHLORIDE
  22. ABILIFY [Concomitant]
     Active Substance: ARIPIPRAZOLE
  23. PROTRIPTYLINE [Concomitant]
     Active Substance: PROTRIPTYLINE
  24. TRAMADOL HCL [Concomitant]
     Active Substance: TRAMADOL HYDROCHLORIDE
  25. AMOXICILLIN. [Concomitant]
     Active Substance: AMOXICILLIN
  26. KETOCONAZOLE. [Concomitant]
     Active Substance: KETOCONAZOLE
  27. CALCIUM MAGNESIUM [Concomitant]
     Active Substance: CALCIUM\MAGNESIUM
  28. VITAMIN D [Concomitant]
     Active Substance: CHOLECALCIFEROL
  29. D-RIBOSE [Concomitant]
     Active Substance: DIETARY SUPPLEMENT
  30. LISINOPRIL. [Concomitant]
     Active Substance: LISINOPRIL
  31. PARNATE [Concomitant]
     Active Substance: TRANYLCYPROMINE SULFATE
  32. RILUTEK [Concomitant]
     Active Substance: RILUZOLE
  33. NAPROXEN. [Concomitant]
     Active Substance: NAPROXEN
  34. ATORVASTATIN [Concomitant]
     Active Substance: ATORVASTATIN
  35. MULTIVITAMINS [Concomitant]
     Active Substance: VITAMINS
  36. VITAMIN C [Concomitant]
     Active Substance: ASCORBIC ACID
  37. XYREM [Suspect]
     Active Substance: SODIUM OXYBATE
     Indication: SLEEP DISORDER
     Dosage: 4.5 G, BID
     Route: 048
     Dates: start: 200611, end: 200710
  38. CLEOCIN [Concomitant]
     Active Substance: CLINDAMYCIN PHOSPHATE
  39. VITAMIN E [Concomitant]
     Active Substance: .ALPHA.-TOCOPHEROL
  40. GUAIFENESIN. [Concomitant]
     Active Substance: GUAIFENESIN
  41. GABAPENTIN. [Concomitant]
     Active Substance: GABAPENTIN
  42. ZYPREXA [Concomitant]
     Active Substance: OLANZAPINE

REACTIONS (2)
  - Middle insomnia [Not Recovered/Not Resolved]
  - Poor quality sleep [Not Recovered/Not Resolved]

NARRATIVE: CASE EVENT DATE: 201606
